FAERS Safety Report 6770876-1 (Version None)
Quarter: 2010Q2

REPORT INFORMATION
  Report Type: 
  Country: None (occurrence: None)
  Receive Date: 20100614
  Receipt Date: 20100527
  Transmission Date: 20101027
  Serious: Yes (Hospitalization)
  Sender: FDA-Public Use
  Company Number: 010284

PATIENT
  Sex: Female

DRUGS (12)
  1. CERTOLIZUMAB PEGOL (CERTOLIZUMAB PEGOL) [Suspect]
     Indication: RHEUMATOID ARTHRITIS
     Dosage: SUBCUTANEOUS
     Route: 058
     Dates: start: 20091228, end: 20100421
  2. MEDROL [Suspect]
     Indication: RHEUMATOID ARTHRITIS
     Dosage: 3 MG QD ORAL
     Route: 048
     Dates: start: 20090828
  3. METHOTREXATE [Concomitant]
  4. LOXOPROFEN SODIUM [Concomitant]
  5. FOLIC ACID [Concomitant]
  6. EPINASTINE HYDROCHLORIDE [Concomitant]
  7. EZETIMIBE [Concomitant]
  8. OLMESARTAN MEDOXOMIL [Concomitant]
  9. AMLODIPINE BESYLATE [Concomitant]
  10. BISOPROLOL FUMARATE [Concomitant]
  11. KETOPROFEN [Concomitant]
  12. ASPIRIN [Concomitant]

REACTIONS (5)
  - CEREBRAL INFARCTION [None]
  - HYPOAESTHESIA [None]
  - SPEECH DISORDER [None]
  - SUBARACHNOID HAEMORRHAGE [None]
  - TRANSIENT ISCHAEMIC ATTACK [None]
